FAERS Safety Report 19920459 (Version 2)
Quarter: 2022Q2

REPORT INFORMATION
  Report Type: Spontaneous
  Country: PT (occurrence: PT)
  Receive Date: 20211006
  Receipt Date: 20220608
  Transmission Date: 20220721
  Serious: Yes (Hospitalization, Other)
  Sender: FDA-Public Use
  Company Number: PT-JNJFOC-20210935248

PATIENT
  Age: 33 Year
  Sex: Male

DRUGS (5)
  1. LORAZEPAM [Suspect]
     Active Substance: LORAZEPAM
     Indication: Schizophrenia
     Dosage: 2.5 MILLIGRAM
     Route: 065
     Dates: start: 2008
  2. LORAZEPAM [Suspect]
     Active Substance: LORAZEPAM
     Dosage: 5 MILLIGRAM, ONCE A DAY
     Route: 065
     Dates: start: 2017
  3. ZOTEPINE [Suspect]
     Active Substance: ZOTEPINE
     Indication: Schizophrenia
     Dosage: 150 MILLIGRAM, ONCE A DAY
     Route: 065
     Dates: start: 2017
  4. HALOPERIDOL DECANOATE [Suspect]
     Active Substance: HALOPERIDOL DECANOATE
     Indication: Schizophrenia
     Dosage: 100 MILLIGRAM (1 MONTH)
     Route: 030
     Dates: start: 2008
  5. HALOPERIDOL DECANOATE [Suspect]
     Active Substance: HALOPERIDOL DECANOATE
     Dosage: 100 MILLIGRAM (1 MONTH)
     Route: 030
     Dates: start: 2017

REACTIONS (1)
  - Schizophrenia [Unknown]

NARRATIVE: CASE EVENT DATE: 20170126
